FAERS Safety Report 4331796-5 (Version None)
Quarter: 2004Q2

REPORT INFORMATION
  Report Type: 
  Country: None (occurrence: None)
  Receive Date: 20040405
  Receipt Date: 20030822
  Transmission Date: 20050107
  Serious: No
  Sender: FDA-Public Use
  Company Number: US-GLAXOSMITHKLINE-A0423432A

PATIENT
  Sex: Male

DRUGS (2)
  1. FLOVENT [Suspect]
     Indication: ILL-DEFINED DISORDER
     Route: 055
  2. ADVAIR DISKUS 100/50 [Suspect]
     Indication: ILL-DEFINED DISORDER
     Route: 055

REACTIONS (1)
  - FATIGUE [None]
